FAERS Safety Report 14975938 (Version 2)
Quarter: 2019Q2

REPORT INFORMATION
  Report Type: Spontaneous
  Country: US (occurrence: US)
  Receive Date: 20180605
  Receipt Date: 20190628
  Transmission Date: 20190711
  Serious: No
  Sender: FDA-Public Use
  Company Number: US-ROCHE-2085185

PATIENT
  Sex: Female

DRUGS (11)
  1. FOLIC ACID. [Concomitant]
     Active Substance: FOLIC ACID
  2. LOPERAMIDE [Concomitant]
     Active Substance: LOPERAMIDE
  3. NORCO [Concomitant]
     Active Substance: ACETAMINOPHEN\HYDROCODONE BITARTRATE
  4. PREDNISONE. [Concomitant]
     Active Substance: PREDNISONE
  5. FOSAMAX [Concomitant]
     Active Substance: ALENDRONATE SODIUM
  6. METHOTREXATE. [Concomitant]
     Active Substance: METHOTREXATE
  7. PLAQUENIL [Concomitant]
     Active Substance: HYDROXYCHLOROQUINE SULFATE
  8. GABAPENTIN. [Concomitant]
     Active Substance: GABAPENTIN
  9. ACTEMRA [Suspect]
     Active Substance: TOCILIZUMAB
     Indication: RHEUMATOID ARTHRITIS
     Route: 042
     Dates: start: 20180109
  10. MEDROL [Concomitant]
     Active Substance: METHYLPREDNISOLONE
  11. RECLAST [Concomitant]
     Active Substance: ZOLEDRONIC ACID

REACTIONS (7)
  - Pain [Unknown]
  - Joint stiffness [Unknown]
  - Arthritis [Unknown]
  - Fatigue [Unknown]
  - Drug ineffective [Unknown]
  - Arthralgia [Unknown]
  - Musculoskeletal stiffness [Unknown]
